FAERS Safety Report 12336636 (Version 7)
Quarter: 2016Q4

REPORT INFORMATION
  Report Type: Report from Study
  Country: None (occurrence: CO)
  Receive Date: 20160505
  Receipt Date: 20161007
  Transmission Date: 20170207
  Serious: Yes (Death, Hospitalization, Other)
  Sender: FDA-Public Use
  Company Number: CO-ABBVIE-16K-036-1545283-00

PATIENT
  Age: 72 Year
  Sex: Male
  Weight: 66 kg

DRUGS (1)
  1. HUMIRA [Suspect]
     Active Substance: ADALIMUMAB
     Indication: PSORIASIS
     Route: 058
     Dates: start: 20140901, end: 20160107

REACTIONS (14)
  - Orchitis noninfective [Not Recovered/Not Resolved]
  - Inflammation [Not Recovered/Not Resolved]
  - Klebsiella infection [Fatal]
  - Oncologic complication [Not Recovered/Not Resolved]
  - Dysuria [Recovering/Resolving]
  - Respiratory arrest [Fatal]
  - Catheter site pain [Not Recovered/Not Resolved]
  - Polyuria [Not Recovered/Not Resolved]
  - Fluid retention [Recovering/Resolving]
  - Rectal cancer [Not Recovered/Not Resolved]
  - Urinary tract infection [Not Recovered/Not Resolved]
  - Obstructive uropathy [Not Recovered/Not Resolved]
  - Prostate cancer metastatic [Not Recovered/Not Resolved]
  - Cystitis noninfective [Unknown]

NARRATIVE: CASE EVENT DATE: 20151229
